FAERS Safety Report 6100935-8 (Version None)
Quarter: 2009Q1

REPORT INFORMATION
  Report Type: 
  Country: None (occurrence: None)
  Receive Date: 20090304
  Receipt Date: 20090224
  Transmission Date: 20090719
  Serious: Yes (Death, Hospitalization)
  Sender: FDA-Public Use
  Company Number: US-JNJFOC-20090205784

PATIENT
  Sex: Male
  Weight: 74.84 kg

DRUGS (6)
  1. REMICADE [Suspect]
     Route: 042
  2. REMICADE [Suspect]
     Route: 042
  3. REMICADE [Suspect]
     Route: 042
  4. REMICADE [Suspect]
     Indication: INFLAMMATORY BOWEL DISEASE
     Route: 042
  5. ASACOL [Concomitant]
  6. ACIPHEX [Concomitant]
     Indication: GASTROINTESTINAL DISORDER

REACTIONS (4)
  - DEATH [None]
  - EPISTAXIS [None]
  - FACTOR VIII DEFICIENCY [None]
  - HAEMORRHAGE [None]
